FAERS Safety Report 6558172-9 (Version None)
Quarter: 2010Q1

REPORT INFORMATION
  Report Type: 
  Country: None (occurrence: None)
  Receive Date: 20100129
  Receipt Date: 20100115
  Transmission Date: 20100710
  Serious: Yes (Hospitalization)
  Sender: FDA-Public Use
  Company Number: FR-JNJFOC-20100110292

PATIENT
  Sex: Male

DRUGS (8)
  1. IXPRIM [Suspect]
     Indication: DRUG USE FOR UNKNOWN INDICATION
     Route: 048
  2. LOXEN [Suspect]
     Indication: DRUG USE FOR UNKNOWN INDICATION
     Route: 065
  3. DOLIPRANE [Suspect]
     Indication: DRUG USE FOR UNKNOWN INDICATION
  4. LODOZ [Concomitant]
  5. FENOFIBRATE [Concomitant]
     Route: 065
  6. XYZAL [Concomitant]
     Route: 065
  7. DOLIPRANE [Concomitant]
     Route: 065
  8. MORPHINE [Concomitant]
     Route: 065

REACTIONS (2)
  - CYTOLYTIC HEPATITIS [None]
  - JAUNDICE [None]
